FAERS Safety Report 16986351 (Version 2)
Quarter: 2020Q3

REPORT INFORMATION
  Report Type: Spontaneous
  Country: DE (occurrence: DE)
  Receive Date: 20191101
  Receipt Date: 20200814
  Transmission Date: 20201102
  Serious: Yes (Hospitalization, Other)
  Sender: FDA-Public Use
  Company Number: DE-BAUSCH-BL-2019-059234

PATIENT
  Age: 70 Year
  Sex: Male

DRUGS (7)
  1. BASILIXIMAB [Suspect]
     Active Substance: BASILIXIMAB
     Indication: IMMUNOSUPPRESSANT DRUG THERAPY
     Route: 065
     Dates: start: 2015
  2. ANTI?HBS HUMAN IMMUNE GLOBULIN [Concomitant]
     Indication: ANTIVIRAL TREATMENT
     Dates: start: 2015, end: 201902
  3. ENTECAVIR. [Concomitant]
     Active Substance: ENTECAVIR
     Indication: ANTIVIRAL TREATMENT
     Dates: start: 2015, end: 201902
  4. TACROLIMUS. [Suspect]
     Active Substance: TACROLIMUS
     Indication: IMMUNOSUPPRESSANT DRUG THERAPY
     Dosage: LOW DOSE
     Route: 065
     Dates: start: 2015
  5. EVEROLIMUS. [Suspect]
     Active Substance: EVEROLIMUS
     Indication: IMMUNOSUPPRESSANT DRUG THERAPY
     Route: 065
     Dates: start: 2015, end: 201802
  6. ENTECAVIR. [Concomitant]
     Active Substance: ENTECAVIR
     Dates: start: 201902
  7. PREDNISOLONE. [Suspect]
     Active Substance: PREDNISOLONE
     Indication: IMMUNOSUPPRESSANT DRUG THERAPY
     Dosage: HIGH DOSE
     Route: 065
     Dates: start: 2015

REACTIONS (2)
  - Hepatitis E [Unknown]
  - Chronic hepatitis B [Unknown]
